FAERS Safety Report 23195957 (Version 1)
Quarter: 2023Q4

REPORT INFORMATION
  Report Type: Spontaneous
  Country: US (occurrence: None)
  Receive Date: 20231116
  Receipt Date: 20231116
  Transmission Date: 20240110
  Serious: Yes (Life-Threatening)
  Sender: FDA-Public Use
  Company Number: None

PATIENT
  Age: 15 Year
  Sex: Female
  Weight: 41.9 kg

DRUGS (1)
  1. ENBREL [Suspect]
     Active Substance: ETANERCEPT
     Indication: Psoriasis
     Dates: start: 20230401, end: 20230601

REACTIONS (7)
  - Weight decreased [None]
  - Pain [None]
  - Eye inflammation [None]
  - Stomatitis [None]
  - Fatigue [None]
  - Therapy cessation [None]
  - Crohn^s disease [None]

NARRATIVE: CASE EVENT DATE: 20230929
